FAERS Safety Report 4335315-9 (Version None)
Quarter: 2004Q2

REPORT INFORMATION
  Report Type: 
  Country: None (occurrence: None)
  Receive Date: 20040408
  Receipt Date: 20040408
  Transmission Date: 20050107
  Serious: Yes (Other)
  Sender: FDA-Public Use
  Company Number: None

PATIENT
  Age: 61 Year
  Sex: Male

DRUGS (6)
  1. ALEMTUZUMAB [Suspect]
     Indication: MYELODYSPLASTIC SYNDROME
     Dosage: 10 - 30 MG IV
     Route: 042
  2. CEFEPIME [Concomitant]
  3. ACETAMINOPHEN [Concomitant]
  4. MEPERIDINE HCL [Concomitant]
  5. HYDROCORTISONE [Concomitant]
  6. DIPHENHYDRAMINE HCL [Concomitant]

REACTIONS (4)
  - BLOOD PRESSURE DIASTOLIC DECREASED [None]
  - CHILLS [None]
  - HEART RATE INCREASED [None]
  - PYREXIA [None]
